FAERS Safety Report 5163401-2 (Version None)
Quarter: 2006Q4

REPORT INFORMATION
  Report Type: 
  Country: None (occurrence: None)
  Receive Date: 20061121
  Receipt Date: 20061113
  Transmission Date: 20070319
  Serious: Yes (Death)
  Sender: FDA-Public Use
  Company Number: CHPA2004US02094

PATIENT
  Age: 69 Year
  Sex: Female

DRUGS (3)
  1. TRANSDERM SCOP [Suspect]
     Indication: NAUSEA
     Dosage: 1 PATCH, ONCE/SINGLE, TRANSDERMAL
     Route: 062
     Dates: start: 20040413, end: 20040414
  2. LORAZEPAM [Concomitant]
  3. MORPHINE [Concomitant]

REACTIONS (2)
  - PHARMACEUTICAL PRODUCT COMPLAINT [None]
  - SALIVARY HYPERSECRETION [None]
